FAERS Safety Report 5620132-X (Version None)
Quarter: 2008Q1

REPORT INFORMATION
  Report Type: 
  Country: None (occurrence: None)
  Receive Date: 20080208
  Receipt Date: 20080128
  Transmission Date: 20080703
  Serious: Yes (Hospitalization)
  Sender: FDA-Public Use
  Company Number: GB-ROCHE-543850

PATIENT
  Age: 40 Year
  Sex: Male
  Weight: 116.1 kg

DRUGS (2)
  1. XENICAL [Suspect]
     Indication: OBESITY
     Route: 048
     Dates: start: 20071017, end: 20071229
  2. NASAL SPRAY [Concomitant]
     Indication: NASAL POLYPS
     Dosage: STEROID NASAL SPRAY, ROUTE: NASAL
     Route: 050
     Dates: start: 20060101

REACTIONS (2)
  - ASTHMA [None]
  - LOWER RESPIRATORY TRACT INFECTION [None]
